FAERS Safety Report 21107622 (Version 2)
Quarter: 2022Q3

REPORT INFORMATION
  Report Type: Spontaneous
  Country: CA (occurrence: CA)
  Receive Date: 20220720
  Receipt Date: 20220725
  Transmission Date: 20221027
  Serious: Yes (Hospitalization, Other)
  Sender: FDA-Public Use
  Company Number: CA-GILEAD-2022-0589370

PATIENT
  Age: 57 Year
  Sex: Female

DRUGS (1)
  1. YESCARTA [Suspect]
     Active Substance: AXICABTAGENE CILOLEUCEL
     Indication: Diffuse large B-cell lymphoma
     Dosage: UNK
     Route: 041
     Dates: start: 20220618

REACTIONS (7)
  - Pancytopenia [Not Recovered/Not Resolved]
  - Immune effector cell-associated neurotoxicity syndrome [Unknown]
  - Platelet count decreased [Unknown]
  - Neutrophil count decreased [Not Recovered/Not Resolved]
  - Confusional state [Unknown]
  - Renal impairment [Not Recovered/Not Resolved]
  - Hypotension [Not Recovered/Not Resolved]

NARRATIVE: CASE EVENT DATE: 20220701
